FAERS Safety Report 4358296-0 (Version None)
Quarter: 2004Q2

REPORT INFORMATION
  Report Type: 
  Country: None (occurrence: None)
  Receive Date: 20040511
  Receipt Date: 20040511
  Transmission Date: 20050107
  Serious: Yes (Death, Life-Threatening, Hospitalization, Disabling)
  Sender: FDA-Public Use
  Company Number: None

PATIENT
  Age: 52 Year
  Sex: Male
  Weight: 72.1 kg

DRUGS (15)
  1. TACROLIMUS [Suspect]
  2. ALLOPURINOL TAB [Suspect]
     Dosage: 100 MG PO
     Route: 048
     Dates: start: 20031016, end: 20031016
  3. METHYLPREDNISOLONE 4MG TAB [Suspect]
     Dosage: 4 MG PO
     Route: 048
     Dates: start: 20031016, end: 20031016
  4. VANCOMYCIN [Suspect]
     Dosage: 1000 MG IV
     Route: 042
     Dates: start: 20031017, end: 20031018
  5. ZOSYN [Suspect]
     Dosage: 2.25 GM IV
     Route: 042
     Dates: start: 20031017, end: 20031018
  6. INSULIN HUMAN REGULAR [Concomitant]
  7. TESTOSTERONE PATCH [Concomitant]
  8. MIDODRINE HCL [Concomitant]
  9. CALCIUM ACETATE [Concomitant]
  10. MEGESTROL [Concomitant]
  11. SIMETHICONE [Concomitant]
  12. ANTACID CONCENTRATE SUSP [Concomitant]
  13. FERROUS SULFATE TAB [Concomitant]
  14. RABEPRAZOLE SODIUM [Concomitant]
  15. ALBUMIN (HUMAN) [Concomitant]

REACTIONS (1)
  - RENAL FAILURE CHRONIC [None]
